FAERS Safety Report 13139985 (Version 1)
Quarter: 2017Q1

REPORT INFORMATION
  Report Type: Spontaneous
  Country: US (occurrence: US)
  Receive Date: 20170123
  Receipt Date: 20170123
  Transmission Date: 20170428
  Serious: No
  Sender: FDA-Public Use
  Company Number: US-JUBILANT CADISTA PHARMACEUTICALS-2016JUB00153

PATIENT
  Sex: Male

DRUGS (2)
  1. 26 UNSPECIFIED MEDICATIONS [Concomitant]
  2. TERAZOSIN [Suspect]
     Active Substance: TERAZOSIN\TERAZOSIN HYDROCHLORIDE

REACTIONS (2)
  - Gastrointestinal injury [Not Recovered/Not Resolved]
  - Coeliac disease [Not Recovered/Not Resolved]
